FAERS Safety Report 23707173 (Version 2)
Quarter: 2024Q2

REPORT INFORMATION
  Report Type: Spontaneous
  Country: US (occurrence: US)
  Receive Date: 20240404
  Receipt Date: 20240419
  Transmission Date: 20240716
  Serious: Yes (Other)
  Sender: FDA-Public Use
  Company Number: US-AMGEN-USASP2024065492

PATIENT
  Age: 73 Year
  Sex: Male

DRUGS (2)
  1. REPATHA [Suspect]
     Active Substance: EVOLOCUMAB
     Indication: Blood cholesterol increased
     Dosage: 140 MILLIGRAM, Q2WK
     Route: 058
     Dates: start: 202312
  2. REPATHA [Suspect]
     Active Substance: EVOLOCUMAB
     Dosage: 140 MILLIGRAM, Q2WK
     Route: 058

REACTIONS (5)
  - Myocardial infarction [Unknown]
  - Cerebrovascular accident [Unknown]
  - Device difficult to use [Unknown]
  - Ill-defined disorder [Unknown]
  - Product communication issue [Unknown]

NARRATIVE: CASE EVENT DATE: 20240326
